FAERS Safety Report 12901284 (Version 2)
Quarter: 2016Q4

REPORT INFORMATION
  Report Type: Report from Study
  Country: US (occurrence: US)
  Receive Date: 20161101
  Receipt Date: 20161109
  Transmission Date: 20170207
  Serious: Yes (Hospitalization, Other)
  Sender: FDA-Public Use
  Company Number: US-JAZZ-2016-US-020839

PATIENT
  Sex: Female

DRUGS (5)
  1. FAZACLO [Suspect]
     Active Substance: CLOZAPINE
     Indication: AUTISM
     Dosage: 300 MG, BID
     Route: 048
     Dates: start: 201207
  2. TRILEPTAL [Concomitant]
     Active Substance: OXCARBAZEPINE
     Indication: PRODUCT USED FOR UNKNOWN INDICATION
  3. CLONAZEPAM. [Concomitant]
     Active Substance: CLONAZEPAM
     Indication: PRODUCT USED FOR UNKNOWN INDICATION
  4. FAZACLO [Suspect]
     Active Substance: CLOZAPINE
     Indication: AGGRESSION
     Dosage: 25 MG, QID
     Route: 048
  5. DEPAKOTE [Concomitant]
     Active Substance: DIVALPROEX SODIUM
     Indication: PRODUCT USED FOR UNKNOWN INDICATION

REACTIONS (1)
  - Seizure [Recovered/Resolved]
